FAERS Safety Report 12661045 (Version 2)
Quarter: 2016Q3

REPORT INFORMATION
  Report Type: Spontaneous
  Country: US (occurrence: US)
  Receive Date: 20160817
  Receipt Date: 20160901
  Transmission Date: 20161109
  Serious: No
  Sender: FDA-Public Use
  Company Number: US-RELYPSA-RLY2016000533

PATIENT
  Sex: Male

DRUGS (20)
  1. VELTASSA [Suspect]
     Active Substance: PATIROMER
     Indication: HYPERKALAEMIA
     Dosage: 8.4 G, QD
     Route: 048
  2. DEXAMETHASONE. [Concomitant]
     Active Substance: DEXAMETHASONE
  3. VITAMIN C [Concomitant]
     Active Substance: ASCORBIC ACID
  4. FISH OIL [Concomitant]
     Active Substance: FISH OIL
  5. LEVEMIR [Concomitant]
     Active Substance: INSULIN DETEMIR
  6. VITAMIN B12 [Concomitant]
     Active Substance: CYANOCOBALAMIN
  7. VITAMIN D                          /00107901/ [Concomitant]
     Active Substance: ERGOCALCIFEROL
  8. ACETAMINOPHEN W/HYDROCODONE [Concomitant]
     Active Substance: ACETAMINOPHEN\HYDROCODONE
  9. CALCITRIOL. [Concomitant]
     Active Substance: CALCITRIOL
  10. GABAPENTIN. [Concomitant]
     Active Substance: GABAPENTIN
  11. TRADJENTA [Concomitant]
     Active Substance: LINAGLIPTIN
  12. CARDURA [Concomitant]
     Active Substance: DOXAZOSIN MESYLATE
  13. IRON [Concomitant]
     Active Substance: IRON
  14. LIPITOR [Concomitant]
     Active Substance: ATORVASTATIN CALCIUM
  15. NICORETTE [Concomitant]
     Active Substance: NICOTINE
  16. ASPIRIN 81 [Concomitant]
     Active Substance: ASPIRIN
  17. COENZYME Q10 [Concomitant]
     Active Substance: UBIDECARENONE
  18. LOTREL [Concomitant]
     Active Substance: AMLODIPINE BESYLATE\BENAZEPRIL HYDROCHLORIDE
  19. ULORIC [Concomitant]
     Active Substance: FEBUXOSTAT
  20. INDAPAMIDE. [Concomitant]
     Active Substance: INDAPAMIDE

REACTIONS (5)
  - Productive cough [Unknown]
  - Chills [Unknown]
  - Diarrhoea [Unknown]
  - Pyrexia [Unknown]
  - Arthralgia [Unknown]
